FAERS Safety Report 8395821-7 (Version None)
Quarter: 2012Q2

REPORT INFORMATION
  Report Type: 
  Country: None (occurrence: None)
  Receive Date: 20120530
  Receipt Date: 20120521
  Transmission Date: 20120825
  Serious: Yes (Hospitalization)
  Sender: FDA-Public Use
  Company Number: US-JHP PHARMACEUTICALS, LLC-JHP201200267

PATIENT
  Age: 44 Year
  Sex: Female

DRUGS (5)
  1. DEXAMETHASONE [Concomitant]
  2. EPINEPHRINE [Suspect]
     Indication: ANAPHYLACTIC REACTION
     Dosage: 1 MG (1:1000)
     Route: 042
  3. ALBUTEROL [Concomitant]
  4. OXYGEN [Concomitant]
  5. ANTIHISTAMINES [Concomitant]

REACTIONS (2)
  - INCORRECT DOSE ADMINISTERED [None]
  - STRESS CARDIOMYOPATHY [None]
